FAERS Safety Report 4790041-7 (Version None)
Quarter: 2005Q4

REPORT INFORMATION
  Report Type: 
  Country: None (occurrence: None)
  Receive Date: 20051006
  Receipt Date: 20050926
  Transmission Date: 20060501
  Serious: Yes (Hospitalization)
  Sender: FDA-Public Use
  Company Number: US-JNJFOC-20050600808

PATIENT
  Sex: Female

DRUGS (16)
  1. RAZADYNE [Suspect]
     Route: 048
  2. RAZADYNE [Suspect]
     Route: 048
  3. RAZADYNE [Suspect]
     Route: 048
  4. NORVASC [Concomitant]
     Route: 048
  5. ACTONEL [Concomitant]
     Route: 048
  6. PROTONIX [Concomitant]
     Route: 048
  7. ALLEGRA [Concomitant]
     Route: 048
  8. LISINOPRIL [Concomitant]
     Route: 048
  9. MEGESTROL [Concomitant]
     Route: 048
  10. ATENOLOL [Concomitant]
     Route: 048
  11. DETROL [Concomitant]
     Route: 048
  12. AMBIEN [Concomitant]
     Route: 048
  13. CRESTOR [Concomitant]
     Route: 048
  14. POTASSIUM CHLORIDE [Concomitant]
     Route: 048
  15. PROPOXYPHENE HCL [Concomitant]
     Route: 048
  16. TRAMADOL [Concomitant]
     Dosage: 50MG EVERY 8 HOURS AS NEEDED.
     Route: 048

REACTIONS (3)
  - FALL [None]
  - MENTAL STATUS CHANGES [None]
  - PNEUMONIA [None]
